FAERS Safety Report 5262638-1 (Version None)
Quarter: 2007Q1

REPORT INFORMATION
  Report Type: 
  Country: None (occurrence: None)
  Receive Date: 20070312
  Receipt Date: 20070228
  Transmission Date: 20070707
  Serious: Yes (Hospitalization, Disabling, Other)
  Sender: FDA-Public Use
  Company Number: 2006UW00983

PATIENT
  Age: 434 Month
  Sex: Male
  Weight: 92.7 kg

DRUGS (14)
  1. SEROQUEL [Suspect]
     Indication: BIPOLAR DISORDER
     Dosage: 25 MG - 300 MG
     Route: 048
     Dates: start: 20010626, end: 20040317
  2. SEROQUEL [Suspect]
     Indication: ATTENTION DEFICIT/HYPERACTIVITY DISORDER
     Dosage: 25 MG - 300 MG
     Route: 048
     Dates: start: 20010626, end: 20040317
  3. SEROQUEL [Suspect]
     Indication: CONVULSION
     Dosage: 25 MG - 300 MG
     Route: 048
     Dates: start: 20010626, end: 20040317
  4. RISPERDAL [Suspect]
     Indication: BIPOLAR DISORDER
     Dates: start: 20010326, end: 20010509
  5. RISPERDAL [Suspect]
     Indication: ATTENTION DEFICIT/HYPERACTIVITY DISORDER
     Dates: start: 20010326, end: 20010509
  6. RISPERDAL [Suspect]
     Indication: CONVULSION
     Dates: start: 20010326, end: 20010509
  7. ZYPREXA [Suspect]
     Indication: BIPOLAR DISORDER
     Dates: start: 20010509, end: 20010626
  8. ZYPREXA [Suspect]
     Indication: ATTENTION DEFICIT/HYPERACTIVITY DISORDER
     Dates: start: 20010509, end: 20010626
  9. ZYPREXA [Suspect]
     Indication: CONVULSION
     Dates: start: 20010509, end: 20010626
  10. GABITRIL [Concomitant]
     Dates: start: 20040101
  11. TRILEPTAL [Concomitant]
     Dates: start: 20031001, end: 20050101
  12. TOPAMAX [Concomitant]
     Dosage: 20 MG - 200 MG
     Dates: start: 19990101, end: 20000101
  13. PAXIL [Concomitant]
     Dates: start: 20050101
  14. KLONOPIN [Concomitant]
     Dates: start: 20040101

REACTIONS (8)
  - BLOOD TRIGLYCERIDES INCREASED [None]
  - CARDIAC DISORDER [None]
  - DIABETES MELLITUS [None]
  - DIABETIC EYE DISEASE [None]
  - GASTRIC BYPASS [None]
  - OBESITY [None]
  - VISUAL ACUITY REDUCED [None]
  - WEIGHT INCREASED [None]
